FAERS Safety Report 18422799 (Version 2)
Quarter: 2020Q4

REPORT INFORMATION
  Report Type: Report from Study
  Country: JP (occurrence: JP)
  Receive Date: 20201023
  Receipt Date: 20201113
  Transmission Date: 20210114
  Serious: Yes (Hospitalization)
  Sender: FDA-Public Use
  Company Number: JP-B.I. PHARMACEUTICALS,INC./RIDGEFIELD-2020-NB-014382

PATIENT
  Age: 72 Year
  Sex: Male
  Weight: 48.9 kg

DRUGS (2)
  1. BISOPROLOL FUMARATE. [Concomitant]
     Active Substance: BISOPROLOL FUMARATE
     Indication: ATRIAL FIBRILLATION
     Route: 048
     Dates: start: 20180227
  2. PRAZAXA [Suspect]
     Active Substance: DABIGATRAN ETEXILATE MESYLATE
     Indication: CEREBROVASCULAR ACCIDENT PROPHYLAXIS
     Route: 048
     Dates: start: 20190227

REACTIONS (2)
  - Alcoholic liver disease [Not Recovered/Not Resolved]
  - Incision site haemorrhage [Recovered/Resolved]

NARRATIVE: CASE EVENT DATE: 20190410
